FAERS Safety Report 7305639-1 (Version None)
Quarter: 2011Q1

REPORT INFORMATION
  Report Type: 
  Country: None (occurrence: None)
  Receive Date: 20110222
  Receipt Date: 20110210
  Transmission Date: 20110831
  Serious: Yes (Other)
  Sender: FDA-Public Use
  Company Number: US-ROCHE-735767

PATIENT
  Sex: Female
  Weight: 43.1 kg

DRUGS (1)
  1. ACCUTANE [Suspect]
     Indication: ACNE
     Route: 065
     Dates: start: 19980101, end: 20010101

REACTIONS (8)
  - CROHN'S DISEASE [None]
  - IRRITABLE BOWEL SYNDROME [None]
  - ABDOMINAL PAIN [None]
  - SUICIDAL IDEATION [None]
  - DEPRESSION [None]
  - NAUSEA [None]
  - RECTAL HAEMORRHAGE [None]
  - COLITIS ULCERATIVE [None]
